FAERS Safety Report 21987288 (Version 4)
Quarter: 2023Q2

REPORT INFORMATION
  Report Type: Spontaneous
  Country: US (occurrence: US)
  Receive Date: 20230214
  Receipt Date: 20230417
  Transmission Date: 20230722
  Serious: No
  Sender: FDA-Public Use
  Company Number: US-BAUSCHBL-2023BNL001095

PATIENT
  Sex: Female

DRUGS (1)
  1. ALAWAY [Suspect]
     Active Substance: KETOTIFEN FUMARATE
     Indication: Product used for unknown indication
     Dosage: A DROP IN EACH EYE
     Route: 047
     Dates: start: 20230207, end: 202302

REACTIONS (1)
  - Instillation site lacrimation [Unknown]

NARRATIVE: CASE EVENT DATE: 20230201
